FAERS Safety Report 24314462 (Version 1)
Quarter: 2024Q3

REPORT INFORMATION
  Report Type: Spontaneous
  Country: NL (occurrence: NL)
  Receive Date: 20240913
  Receipt Date: 20240913
  Transmission Date: 20241017
  Serious: Yes (Other)
  Sender: STRIDES
  Company Number: NL-STRIDES ARCOLAB LIMITED-2024SP011600

PATIENT
  Age: 27 Year
  Sex: Male

DRUGS (9)
  1. TESTOSTERONE [Interacting]
     Active Substance: TESTOSTERONE
     Indication: Product used for unknown indication
     Dosage: UNK
     Route: 065
     Dates: start: 2023
  2. CABOTEGRAVIR\RILPIVIRINE [Interacting]
     Active Substance: CABOTEGRAVIR\RILPIVIRINE
     Indication: HIV infection
     Dosage: UNK (INJECTION)
     Route: 065
  3. CABOTEGRAVIR\RILPIVIRINE [Interacting]
     Active Substance: CABOTEGRAVIR\RILPIVIRINE
     Dosage: UNK; LONG-ACTING (0.5 MONTHS)
     Route: 048
     Dates: start: 20230425, end: 2023
  4. NANDROLONE [Interacting]
     Active Substance: NANDROLONE
     Indication: Product used for unknown indication
     Dosage: UNK
     Route: 065
     Dates: start: 2023
  5. DICLOFENAC [Concomitant]
     Active Substance: DICLOFENAC
     Indication: Product used for unknown indication
     Dosage: UNK (OCCASIONAL)
     Route: 065
     Dates: start: 2023
  6. VITAMINS [Concomitant]
     Active Substance: VITAMINS
     Indication: Vitamin supplementation
     Dosage: UNK
     Route: 065
     Dates: start: 2023
  7. RALTEGRAVIR [Concomitant]
     Active Substance: RALTEGRAVIR
     Indication: HIV infection
     Dosage: UNK
     Route: 065
  8. EMTRICITABINE\TENOFOVIR DISOPROXIL FUMARATE [Concomitant]
     Active Substance: EMTRICITABINE\TENOFOVIR DISOPROXIL FUMARATE
     Indication: HIV infection
     Dosage: UNK
     Route: 065
  9. DORAVIRINE\LAMIVUDINE\TENOFOVIR DISOPROXIL FUMARATE [Concomitant]
     Active Substance: DORAVIRINE\LAMIVUDINE\TENOFOVIR DISOPROXIL FUMARATE
     Indication: HIV infection
     Dosage: UNK
     Route: 065

REACTIONS (4)
  - Drug interaction [Unknown]
  - Virologic failure [Unknown]
  - Pathogen resistance [Unknown]
  - Drug abuse [Unknown]

NARRATIVE: CASE EVENT DATE: 20230101
